FAERS Safety Report 11640983 (Version 5)
Quarter: 2016Q2

REPORT INFORMATION
  Report Type: Report from Study
  Country: US (occurrence: US)
  Receive Date: 20151019
  Receipt Date: 20160407
  Transmission Date: 20160815
  Serious: Yes (Hospitalization)
  Sender: FDA-Public Use
  Company Number: US-ACTELION-A-NJ2015-124956

PATIENT
  Age: 54 Year
  Sex: Female

DRUGS (4)
  1. VELETRI [Suspect]
     Active Substance: EPOPROSTENOL
     Dosage: 33 NG/KG, PER MIN
     Route: 042
     Dates: start: 20141204
  2. VELETRI [Suspect]
     Active Substance: EPOPROSTENOL
     Indication: PULMONARY ARTERIAL HYPERTENSION
     Dosage: 33 NG/KG, PER MIN
     Route: 042
     Dates: start: 20121204
  3. OPSUMIT [Suspect]
     Active Substance: MACITENTAN
     Indication: PULMONARY ARTERIAL HYPERTENSION
     Dosage: 10 MG, QD
     Route: 048
     Dates: start: 20140106
  4. COUMADIN [Concomitant]
     Active Substance: WARFARIN SODIUM

REACTIONS (7)
  - Catheter site erythema [Unknown]
  - Device related infection [Unknown]
  - Catheter site discharge [Unknown]
  - Catheter management [Unknown]
  - Catheter site oedema [Unknown]
  - Catheter site pain [Unknown]
  - Culture positive [Unknown]
